FAERS Safety Report 9454139 (Version 3)
Quarter: 2013Q4

REPORT INFORMATION
  Report Type: Spontaneous
  Country: US (occurrence: None)
  Receive Date: 20130807
  Receipt Date: 20131227
  Transmission Date: 20140711
  Serious: Yes (Hospitalization, Congenital Anomaly)
  Sender: FDA-Public Use
  Company Number: SYM-2013-07654

PATIENT
  Age: 0 Day
  Sex: Female

DRUGS (1)
  1. WELLBUTRIN [Suspect]
     Indication: SMOKING CESSATION THERAPY
     Route: 064
     Dates: start: 20000128

REACTIONS (10)
  - Hypoplastic left heart syndrome [None]
  - Maternal drugs affecting foetus [None]
  - Foetal exposure during pregnancy [None]
  - Caesarean section [None]
  - Apnoea [None]
  - Bradycardia [None]
  - Apnoea neonatal [None]
  - Bradycardia neonatal [None]
  - Tricuspid valve incompetence [None]
  - Aortic valve incompetence [None]
